FAERS Safety Report 15493267 (Version 1)
Quarter: 2018Q4

REPORT INFORMATION
  Report Type: Report from Study
  Country: JP (occurrence: JP)
  Receive Date: 20181012
  Receipt Date: 20181012
  Transmission Date: 20190205
  Serious: Yes (Other)
  Sender: FDA-Public Use
  Company Number: JP-TEVA-2018-JP-963261

PATIENT
  Sex: Male

DRUGS (4)
  1. 5-FLUOROURACIL [Suspect]
     Active Substance: FLUOROURACIL
     Indication: LARYNGEAL SQUAMOUS CELL CARCINOMA
     Dosage: RECEIVED OVER 24 HOURS FOR 5 DAYS, ON DAYS 1-5 OF THE CYCLE
     Route: 065
  2. METHOTREXATE. [Suspect]
     Active Substance: METHOTREXATE
     Indication: LARYNGEAL SQUAMOUS CELL CARCINOMA
     Dosage: RECEIVED ON DAY 1 OF THE CYCLE
     Route: 065
  3. LEUCOVORIN. [Suspect]
     Active Substance: LEUCOVORIN
     Indication: LARYNGEAL SQUAMOUS CELL CARCINOMA
     Dosage: RECEIVED ON DAYS 1-5 OF EVERY 4 WEEKS CYCLE
     Route: 065
  4. CISPLATIN. [Suspect]
     Active Substance: CISPLATIN
     Indication: LARYNGEAL SQUAMOUS CELL CARCINOMA
     Dosage: RECEIVED ON DAY 4 OF THE CYCLE
     Route: 065

REACTIONS (2)
  - Mucosal inflammation [Unknown]
  - Dysphagia [Unknown]
